FAERS Safety Report 10751385 (Version 3)
Quarter: 2015Q1

REPORT INFORMATION
  Report Type: Spontaneous
  Country: GB (occurrence: GB)
  Receive Date: 20150130
  Receipt Date: 20150313
  Transmission Date: 20150721
  Serious: Yes (Other)
  Sender: FDA-Public Use
  Company Number: 2015SP000257

PATIENT
  Age: 21 Year
  Sex: Male

DRUGS (7)
  1. LATUDA [Suspect]
     Active Substance: LURASIDONE HYDROCHLORIDE
     Indication: PSYCHOTIC DISORDER
     Route: 048
  2. HALDOL [Concomitant]
     Active Substance: HALOPERIDOL
  3. LATUDA [Suspect]
     Active Substance: LURASIDONE HYDROCHLORIDE
     Indication: PSYCHOTIC DISORDER
     Route: 048
     Dates: start: 20141204, end: 20141225
  4. LORAZEPAM. [Concomitant]
     Active Substance: LORAZEPAM
  5. CLOZAPINE. [Concomitant]
     Active Substance: CLOZAPINE
  6. CHLORPROMAZINE [Concomitant]
     Active Substance: CHLORPROMAZINE
  7. LITHIUM [Concomitant]
     Active Substance: LITHIUM CARBONATE

REACTIONS (3)
  - Disinhibition [Recovered/Resolved]
  - Agitation [Recovered/Resolved]
  - Sexually inappropriate behaviour [Recovered/Resolved]

NARRATIVE: CASE EVENT DATE: 2014
